FAERS Safety Report 13578446 (Version 1)
Quarter: 2017Q2

REPORT INFORMATION
  Report Type: Spontaneous
  Country: DE (occurrence: DE)
  Receive Date: 20170524
  Receipt Date: 20170524
  Transmission Date: 20170830
  Serious: Yes (Other)
  Sender: FDA-Public Use
  Company Number: DE-FRESENIUS KABI-FK201704481

PATIENT
  Age: 58 Year
  Sex: Male

DRUGS (3)
  1. LEUCOVORIN CALCIUM (MANUFACTURER UNKNOWN) [Suspect]
     Active Substance: LEUCOVORIN CALCIUM
     Indication: ADENOSQUAMOUS CELL CARCINOMA
     Route: 065
     Dates: start: 201205
  2. OXALIPLATIN (MANUFACTURER UNKNOWN) [Suspect]
     Active Substance: OXALIPLATIN
     Indication: ADENOSQUAMOUS CELL CARCINOMA
     Route: 065
     Dates: start: 201205
  3. FLUOROURACIL (MANUFACTURER UNKNOWN) [Suspect]
     Active Substance: FLUOROURACIL
     Indication: ADENOSQUAMOUS CELL CARCINOMA
     Route: 065
     Dates: start: 201205

REACTIONS (1)
  - Polyneuropathy [Unknown]

NARRATIVE: CASE EVENT DATE: 201206
